FAERS Safety Report 10179908 (Version 1)
Quarter: 2014Q2

REPORT INFORMATION
  Report Type: Spontaneous
  Country: US (occurrence: US)
  Receive Date: 20140519
  Receipt Date: 20140519
  Transmission Date: 20141212
  Serious: No
  Sender: FDA-Public Use
  Company Number: US-AMGEN INC.-USASP2013071734

PATIENT
  Age: 55 Year
  Sex: Female

DRUGS (5)
  1. PROLIA [Suspect]
     Indication: OSTEOPOROSIS
     Dosage: UNK
     Route: 065
  2. CALCIUM [Concomitant]
     Route: 065
  3. VITAMIN D                          /00107901/ [Concomitant]
     Route: 065
  4. FISH OIL                           /00492901/ [Concomitant]
     Route: 065
  5. ASPIRIN [Concomitant]
     Route: 065

REACTIONS (3)
  - Tooth loss [Unknown]
  - Loose tooth [Unknown]
  - Tooth fracture [Unknown]
